FAERS Safety Report 9119818 (Version 1)
Quarter: 2013Q1

REPORT INFORMATION
  Report Type: Spontaneous
  Country: AR (occurrence: AR)
  Receive Date: 20130226
  Receipt Date: 20130226
  Transmission Date: 20140127
  Serious: Yes (Hospitalization, Other)
  Sender: FDA-Public Use
  Company Number: AR-AMGEN-ARGSP2013012670

PATIENT
  Age: 66 Year
  Sex: Male

DRUGS (1)
  1. ENBREL [Suspect]
     Indication: RHEUMATOID ARTHRITIS
     Dosage: 25 MG, WEEKLY
     Dates: start: 20051111

REACTIONS (6)
  - Foot deformity [Unknown]
  - Peripheral arterial occlusive disease [Unknown]
  - Abasia [Unknown]
  - Skin ulcer [Unknown]
  - Hyperkeratosis [Unknown]
  - Localised infection [Unknown]
